FAERS Safety Report 21593213 (Version 1)
Quarter: 2022Q4

REPORT INFORMATION
  Report Type: Report from Study
  Country: US (occurrence: US)
  Receive Date: 20221114
  Receipt Date: 20221114
  Transmission Date: 20230112
  Serious: Yes (Other)
  Sender: FDA-Public Use
  Company Number: US-ABBVIE-4139345

PATIENT
  Sex: Female

DRUGS (1)
  1. HUMIRA [Suspect]
     Active Substance: ADALIMUMAB
     Indication: Product used for unknown indication
     Route: 058

REACTIONS (7)
  - Hepatic failure [Unknown]
  - Alopecia [Unknown]
  - Non-alcoholic fatty liver [Unknown]
  - Skin discolouration [Unknown]
  - Dermatitis acneiform [Unknown]
  - Illness [Unknown]
  - Pain [Unknown]
